FAERS Safety Report 18605832 (Version 3)
Quarter: 2021Q1

REPORT INFORMATION
  Report Type: Spontaneous
  Country: GB (occurrence: GB)
  Receive Date: 20201211
  Receipt Date: 20210218
  Transmission Date: 20210419
  Serious: Yes (Hospitalization)
  Sender: FDA-Public Use
  Company Number: GB-ETON PHARMACEUTICALS, INC.-2101887

PATIENT
  Age: 18 Month
  Sex: Male

DRUGS (3)
  1. ALKINDI SPRINKLE [Suspect]
     Active Substance: HYDROCORTISONE
     Indication: SEPTO-OPTIC DYSPLASIA
     Route: 048
     Dates: start: 20201119, end: 20201121
  2. LEVOTHYROXINE. [Concomitant]
     Active Substance: LEVOTHYROXINE
  3. HYDROCORTISONE SOLUBLE TABLET [Concomitant]
     Route: 048
     Dates: start: 20200901

REACTIONS (4)
  - Syncope [Recovered/Resolved]
  - Decreased activity [Recovered/Resolved]
  - Adrenocortical insufficiency acute [Recovered/Resolved]
  - Therapy non-responder [Recovered/Resolved]

NARRATIVE: CASE EVENT DATE: 20201121
